FAERS Safety Report 4766028-7 (Version None)
Quarter: 2005Q3

REPORT INFORMATION
  Report Type: 
  Country: None (occurrence: None)
  Receive Date: 20050912
  Receipt Date: 20050817
  Transmission Date: 20060218
  Serious: Yes (Death, Hospitalization)
  Sender: FDA-Public Use
  Company Number: J200502802

PATIENT
  Age: 79 Year
  Sex: Female

DRUGS (3)
  1. AMOXICILLIN [Suspect]
     Indication: HELICOBACTER INFECTION
     Dosage: 1500MG PER DAY
     Route: 048
     Dates: start: 20040608, end: 20040614
  2. CLARITHROMYCIN [Suspect]
     Indication: HELICOBACTER INFECTION
     Dosage: 400MG PER DAY
     Route: 048
     Dates: start: 20040608, end: 20040614
  3. LANSOPRAZOLE [Suspect]
     Indication: HELICOBACTER INFECTION
     Route: 048
     Dates: start: 20040608, end: 20040625

REACTIONS (10)
  - BLOOD PRESSURE DECREASED [None]
  - DEPRESSED LEVEL OF CONSCIOUSNESS [None]
  - HAEMOLYTIC ANAEMIA [None]
  - PNEUMONIA [None]
  - PYREXIA [None]
  - RESPIRATION ABNORMAL [None]
  - RESPIRATORY ACIDOSIS [None]
  - RESPIRATORY DISORDER [None]
  - SEPSIS [None]
  - THROMBOTIC THROMBOCYTOPENIC PURPURA [None]
